FAERS Safety Report 7762949-1 (Version None)
Quarter: 2011Q3

REPORT INFORMATION
  Report Type: 
  Country: None (occurrence: None)
  Receive Date: 20110920
  Receipt Date: 20110909
  Transmission Date: 20111222
  Serious: Yes (Other)
  Sender: FDA-Public Use
  Company Number: US-ELI_LILLY_AND_COMPANY-US201109003573

PATIENT
  Sex: Female

DRUGS (3)
  1. HUMALOG [Suspect]
     Indication: DIABETES MELLITUS
     Dosage: 15 U, OTHER
     Dates: start: 20070101
  2. LANTUS [Concomitant]
     Dosage: UNK
  3. METFORMIN HCL [Concomitant]
     Dosage: UNK

REACTIONS (3)
  - INCORRECT STORAGE OF DRUG [None]
  - PRESYNCOPE [None]
  - BLOOD GLUCOSE INCREASED [None]
